FAERS Safety Report 6735061-8 (Version None)
Quarter: 2010Q2

REPORT INFORMATION
  Report Type: 
  Country: None (occurrence: None)
  Receive Date: 20100521
  Receipt Date: 20100511
  Transmission Date: 20101027
  Serious: Yes (Other)
  Sender: FDA-Public Use
  Company Number: FR-JNJFOC-20100504461

PATIENT
  Sex: Female

DRUGS (1)
  1. CAELYX [Suspect]
     Indication: OVARIAN CANCER
     Dosage: TOTAL OF EIGHT OR NINE CYCLES OF DOXORUBICIN HYDROCHLORIDE OVER TWO TREATMENTS
     Route: 042

REACTIONS (1)
  - INTERSTITIAL LUNG DISEASE [None]
